FAERS Safety Report 5858697-5 (Version None)
Quarter: 2008Q3

REPORT INFORMATION
  Report Type: 
  Country: None (occurrence: None)
  Receive Date: 20080826
  Receipt Date: 20080819
  Transmission Date: 20090109
  Serious: No
  Sender: FDA-Public Use
  Company Number: US-BOEHRINGER INGELHEIM GMBH, GERMANY-2008-BP-12336BP

PATIENT
  Age: 67 Year
  Sex: Female

DRUGS (6)
  1. ZANTAC [Suspect]
     Indication: GASTRITIS PROPHYLAXIS
     Route: 048
     Dates: start: 20080405, end: 20080728
  2. ZANTAC [Suspect]
     Indication: GASTROOESOPHAGEAL REFLUX DISEASE
  3. DIOVAN HCT [Concomitant]
     Indication: HYPERTENSION
  4. MOBIC [Concomitant]
  5. VIVACTYL [Concomitant]
     Indication: DEPRESSION
  6. EVISTA [Concomitant]

REACTIONS (3)
  - ABDOMINAL PAIN UPPER [None]
  - DYSPEPSIA [None]
  - THROAT IRRITATION [None]
